FAERS Safety Report 22597665 (Version 1)
Quarter: 2023Q2

REPORT INFORMATION
  Report Type: Report from Study
  Country: US (occurrence: US)
  Receive Date: 20230614
  Receipt Date: 20230614
  Transmission Date: 20230721
  Serious: Yes (Other)
  Sender: FDA-Public Use
  Company Number: US-ABBVIE-5288326

PATIENT
  Sex: Female

DRUGS (1)
  1. SKYRIZI [Suspect]
     Active Substance: RISANKIZUMAB-RZAA
     Indication: Psoriasis
     Route: 058
     Dates: start: 20221227

REACTIONS (4)
  - Middle ear effusion [Recovering/Resolving]
  - Suspected COVID-19 [Recovered/Resolved]
  - Hypoxia [Not Recovered/Not Resolved]
  - Thrombosis in device [Unknown]

NARRATIVE: CASE EVENT DATE: 20230101
